FAERS Safety Report 15425537 (Version 1)
Quarter: 2018Q3

REPORT INFORMATION
  Report Type: Report from Study
  Country: US (occurrence: US)
  Receive Date: 20180925
  Receipt Date: 20180925
  Transmission Date: 20181010
  Serious: Yes (Death)
  Sender: FDA-Public Use
  Company Number: US-PFIZER INC-2018386487

PATIENT
  Age: 68 Year
  Sex: Male

DRUGS (6)
  1. DOXORUBICIN HCL [Suspect]
     Active Substance: DOXORUBICIN HYDROCHLORIDE
     Indication: EPSTEIN-BARR VIRUS ASSOCIATED LYMPHOMA
     Dosage: UNK
  2. RITUXIMAB. [Suspect]
     Active Substance: RITUXIMAB
     Indication: EPSTEIN-BARR VIRUS ASSOCIATED LYMPHOMA
     Dosage: UNK
  3. ETOPOSIDE. [Suspect]
     Active Substance: ETOPOSIDE
     Indication: EPSTEIN-BARR VIRUS ASSOCIATED LYMPHOMA
     Dosage: UNK
  4. PREDNISONE. [Suspect]
     Active Substance: PREDNISONE
     Indication: DIFFUSE LARGE B-CELL LYMPHOMA
     Dosage: UNK
  5. VINCRISTINE SULFATE. [Suspect]
     Active Substance: VINCRISTINE SULFATE
     Indication: EPSTEIN-BARR VIRUS ASSOCIATED LYMPHOMA
     Dosage: UNK
  6. CYCLOPHOSPHAMIDE. [Suspect]
     Active Substance: CYCLOPHOSPHAMIDE
     Indication: EPSTEIN-BARR VIRUS ASSOCIATED LYMPHOMA
     Dosage: UNK

REACTIONS (2)
  - Second primary malignancy [Fatal]
  - Acute myeloid leukaemia [Fatal]
